FAERS Safety Report 9448792 (Version 1)
Quarter: 2013Q3

REPORT INFORMATION
  Report Type: Spontaneous
  Country: GB (occurrence: GB)
  Receive Date: 20130808
  Receipt Date: 20130808
  Transmission Date: 20140515
  Serious: Yes (Hospitalization)
  Sender: FDA-Public Use
  Company Number: GB-WATSON-2013-13936

PATIENT
  Age: 48 Year
  Sex: Female

DRUGS (3)
  1. NAPROXEN (UNKNOWN) [Suspect]
     Indication: TENDONITIS
     Dosage: 500 MG, UNKNOWN
     Route: 048
     Dates: end: 20130709
  2. DOMPERIDONE [Concomitant]
     Indication: GASTROOESOPHAGEAL REFLUX DISEASE
     Dosage: UNK, UNKNOWN
     Route: 065
  3. ESOMEPRAZOLE [Concomitant]
     Indication: GASTROOESOPHAGEAL REFLUX DISEASE
     Dosage: UNK, UNKNOWN
     Route: 065

REACTIONS (1)
  - Ischaemic stroke [Unknown]
